FAERS Safety Report 14128056 (Version 1)
Quarter: 2017Q4

REPORT INFORMATION
  Report Type: Spontaneous
  Country: DK (occurrence: DK)
  Receive Date: 20171026
  Receipt Date: 20171026
  Transmission Date: 20180321
  Serious: Yes (Other)
  Sender: FDA-Public Use
  Company Number: DK-ACCORD-060191

PATIENT
  Sex: Male

DRUGS (1)
  1. MYCOPHENOLATE MOFETIL ACCORD [Suspect]
     Active Substance: MYCOPHENOLATE MOFETIL
     Indication: UVEITIS
     Dosage: STRENGTH: 500 MG
     Route: 048
     Dates: start: 20160819, end: 20170928

REACTIONS (7)
  - Product substitution issue [Unknown]
  - Aggression [Recovered/Resolved]
  - Mood swings [Recovered/Resolved]
  - Depressed mood [Recovered/Resolved]
  - Social avoidant behaviour [Recovered/Resolved]
  - Off label use [Unknown]
  - Suicidal ideation [Recovered/Resolved]
